FAERS Safety Report 15062029 (Version 1)
Quarter: 2018Q2

REPORT INFORMATION
  Report Type: Spontaneous
  Country: US (occurrence: US)
  Receive Date: 20180605
  Receipt Date: 20180605
  Transmission Date: 20180711
  Serious: No
  Sender: FDA-Public Use
  Company Number: None

PATIENT
  Age: 73 Year
  Sex: Female

DRUGS (2)
  1. AFINITOR [Suspect]
     Active Substance: EVEROLIMUS
     Indication: NEOPLASM MALIGNANT
     Route: 048
     Dates: start: 20180525
  2. EXEMESTANE 25 MG [Suspect]
     Active Substance: EXEMESTANE
     Indication: NEOPLASM MALIGNANT

REACTIONS (2)
  - Gastrooesophageal reflux disease [None]
  - Diarrhoea [None]

NARRATIVE: CASE EVENT DATE: 20180505
